FAERS Safety Report 5636579-1 (Version None)
Quarter: 2008Q1

REPORT INFORMATION
  Report Type: 
  Country: None (occurrence: None)
  Receive Date: 20080225
  Receipt Date: 20080220
  Transmission Date: 20080703
  Serious: Yes (Hospitalization)
  Sender: FDA-Public Use
  Company Number: FR-WYE-G01092308

PATIENT
  Sex: Female

DRUGS (2)
  1. ADVIL [Suspect]
     Indication: HEADACHE
     Dosage: UNKNOWN
     Route: 048
     Dates: start: 20071201, end: 20071201
  2. CERAZETTE [Concomitant]
     Dosage: UNKNOWN
     Route: 048
     Dates: start: 20071118

REACTIONS (7)
  - ANTINUCLEAR ANTIBODY POSITIVE [None]
  - HENOCH-SCHONLEIN PURPURA [None]
  - HYPERTENSION [None]
  - IDIOPATHIC THROMBOCYTOPENIC PURPURA [None]
  - MENORRHAGIA [None]
  - TACHYCARDIA [None]
  - THROMBOCYTOPENIA [None]
